FAERS Safety Report 8580863-9 (Version None)
Quarter: 2012Q3

REPORT INFORMATION
  Report Type: 
  Country: None (occurrence: None)
  Receive Date: 20120809
  Receipt Date: 20120730
  Transmission Date: 20120928
  Serious: Yes (Hospitalization)
  Sender: FDA-Public Use
  Company Number: ES-TEVA-351255ISR

PATIENT
  Age: 49 Year
  Sex: Male

DRUGS (6)
  1. GABAPENTIN [Suspect]
     Indication: BACK PAIN
  2. MIANSERIN [Concomitant]
     Route: 065
  3. EPROSARTAN [Concomitant]
     Indication: HYPERTENSION
     Route: 065
  4. BISOPROLOL FUMARATE [Concomitant]
     Indication: HYPERTENSION
     Route: 065
  5. DISULFIRAM [Concomitant]
     Route: 065
  6. PAROXETINE [Concomitant]
     Route: 065

REACTIONS (4)
  - ENCEPHALOPATHY [None]
  - DRUG SCREEN POSITIVE [None]
  - RHABDOMYOLYSIS [None]
  - RENAL FAILURE ACUTE [None]
